FAERS Safety Report 5215510-7 (Version None)
Quarter: 2007Q1

REPORT INFORMATION
  Report Type: 
  Country: None (occurrence: None)
  Receive Date: 20070123
  Receipt Date: 20070112
  Transmission Date: 20070707
  Serious: Yes (Hospitalization)
  Sender: FDA-Public Use
  Company Number: PHHO2004JP10441

PATIENT
  Age: 80 Year
  Sex: Male
  Weight: 88 kg

DRUGS (7)
  1. DIOVAN [Suspect]
     Indication: HYPERTENSION
     Dosage: 80 MG, QD
     Route: 048
     Dates: start: 20021115
  2. RIFATAC L [Concomitant]
     Indication: MYOCARDIAL INFARCTION
     Dosage: 40 MG, QD
     Route: 048
     Dates: start: 20020419
  3. AMARYL [Concomitant]
     Indication: DIABETES MELLITUS
     Dosage: 4 MG, QD
     Route: 048
  4. MEVALOTIN [Concomitant]
     Indication: HYPERLIPIDAEMIA
     Dosage: 10 MG, QD
     Route: 048
     Dates: start: 20020920
  5. BUFFERIN [Concomitant]
     Indication: MYOCARDIAL INFARCTION
     Dosage: 81 MG, BID
     Route: 048
  6. MUCOSTA [Concomitant]
     Indication: GASTRITIS
     Dosage: 300 MG, UNK
     Dates: start: 20020419
  7. HARNAL [Concomitant]
     Indication: DYSURIA
     Dosage: .2 MG, UNK
     Route: 048
     Dates: start: 20030414

REACTIONS (4)
  - BENIGN PROSTATIC HYPERPLASIA [None]
  - CEREBRAL INFARCTION [None]
  - DEPRESSED LEVEL OF CONSCIOUSNESS [None]
  - SPEECH DISORDER [None]
